FAERS Safety Report 9521587 (Version 1)
Quarter: 2013Q1

REPORT INFORMATION
  Report Type: Spontaneous
  Country: US (occurrence: None)
  Receive Date: 20130305
  Receipt Date: 20130305
  Transmission Date: 20140127
  Serious: Yes (Other)
  Sender: FDA-Public Use
  Company Number: 163-21880-12073237

PATIENT
  Age: 75 Year
  Sex: Male
  Weight: 97 kg

DRUGS (4)
  1. REVLIMID (LENALIDOMIDE) (CAPSULES) [Suspect]
     Indication: MYELODYSPLASTIC SYNDROME
     Route: 048
     Dates: start: 20111230, end: 20120627
  2. FOLIC ACID (FOLIC ACID) (UNKNOWN) [Concomitant]
  3. PROCRIT (ERYTHROPOIETIN) (UNKNOWN) [Concomitant]
  4. INHALER FOR ASTHMA (OTHER ANTI-ASTHMATICS, INHALANTS) (INHALANT) [Concomitant]

REACTIONS (2)
  - Neutropenia [None]
  - Thrombocytopenia [None]
